FAERS Safety Report 4352383-9 (Version None)
Quarter: 2004Q2

REPORT INFORMATION
  Report Type: 
  Country: None (occurrence: None)
  Receive Date: 20040428
  Receipt Date: 20040416
  Transmission Date: 20050107
  Serious: Yes (Other)
  Sender: FDA-Public Use
  Company Number: 2004025029

PATIENT
  Age: 74 Year
  Sex: Female

DRUGS (6)
  1. NORVASC [Suspect]
     Dosage: 5 MG (DAILY), ORAL
     Route: 048
     Dates: start: 19980101
  2. IBUDILAST (IBUDILAST) [Concomitant]
  3. PROPIVERINE HYDROCHLORIDE (PROPIVERINE HYDROCHLORIED) [Concomitant]
  4. ACETYLSLICYLIC ACID( ACETILSALICYLIC ACID) [Concomitant]
  5. ZONISAMIDE (ZONASAID [Concomitant]
  6. MECOBLAMAMIN (MECOBLAMIN) [Concomitant]

REACTIONS (2)
  - DYSGEUSIA [None]
  - HYPOAESTHESIA [None]
